FAERS Safety Report 8560684-3 (Version None)
Quarter: 2012Q3

REPORT INFORMATION
  Report Type: 
  Country: None (occurrence: None)
  Receive Date: 20120802
  Receipt Date: 20120730
  Transmission Date: 20120928
  Serious: Yes (Hospitalization, Other)
  Sender: FDA-Public Use
  Company Number: US-PFIZER INC-2012111145

PATIENT
  Sex: Female

DRUGS (1)
  1. CHANTIX [Suspect]
     Indication: SMOKING CESSATION THERAPY
     Dosage: 0.5MG AND 1MG
     Dates: start: 20070101, end: 20070501

REACTIONS (5)
  - SUICIDE ATTEMPT [None]
  - INSOMNIA [None]
  - DEPRESSION [None]
  - ANXIETY [None]
  - ABNORMAL BEHAVIOUR [None]
